FAERS Safety Report 8962737 (Version 5)
Quarter: 2013Q1

REPORT INFORMATION
  Report Type: Report from Study
  Country: US (occurrence: US)
  Receive Date: 20121213
  Receipt Date: 20130313
  Transmission Date: 20140127
  Serious: Yes (Hospitalization)
  Sender: FDA-Public Use
  Company Number: US-PFIZER INC-2012306738

PATIENT
  Age: 58 Year
  Sex: Male
  Weight: 57.75 kg

DRUGS (13)
  1. PF-04136309 [Suspect]
     Indication: PANCREATIC CARCINOMA
     Dosage: 500 MG, 2X/DAY
     Route: 048
     Dates: start: 20121126, end: 20121202
  2. FLUOROURACIL [Suspect]
     Indication: PANCREATIC CARCINOMA
     Dosage: 704 MG, EVERY 2 WEEKS
     Route: 040
     Dates: start: 20121126, end: 20121126
  3. FLUOROURACIL [Suspect]
     Dosage: 4224 MG, EVERY 2 WEEKS, CIVI PUMP
     Route: 042
     Dates: start: 20121126, end: 20121128
  4. OXALIPLATIN [Suspect]
     Indication: PANCREATIC CARCINOMA
     Dosage: 150 MG, EVERY 2 WEEKS
     Route: 042
     Dates: start: 20121126, end: 20121126
  5. IRINOTECAN HCL [Suspect]
     Indication: PANCREATIC CARCINOMA
     Dosage: 317 MG, EVERY 2 WEEKS
     Route: 042
     Dates: start: 20121126, end: 20121126
  6. LEUCOVORIN [Suspect]
     Indication: PANCREATIC CARCINOMA
     Dosage: 704 MG, EVERY 2 WEEKS
     Route: 042
     Dates: start: 20121126, end: 20121126
  7. CREON [Concomitant]
  8. OXYCODONE/APAP [Concomitant]
  9. PRILOSEC [Concomitant]
  10. SENNA-S [Concomitant]
  11. MORPHINE SULFATE ER [Concomitant]
  12. VITAMIN D [Concomitant]
  13. PROCHLORPERAZINE [Concomitant]

REACTIONS (1)
  - Pancreatitis [Recovered/Resolved]
